FAERS Safety Report 7912280-6 (Version None)
Quarter: 2011Q4

REPORT INFORMATION
  Report Type: 
  Country: None (occurrence: None)
  Receive Date: 20111114
  Receipt Date: 20111103
  Transmission Date: 20120403
  Serious: Yes (Other)
  Sender: FDA-Public Use
  Company Number: US-AMGEN-USASP2011057566

PATIENT
  Sex: Female

DRUGS (3)
  1. RECLAST [Concomitant]
  2. CALCIUM [Concomitant]
  3. XGEVA [Suspect]
     Indication: METASTASES TO BONE
     Dosage: UNK

REACTIONS (5)
  - DYSPHAGIA [None]
  - VOMITING [None]
  - HYPOCALCAEMIA [None]
  - METASTASES TO CENTRAL NERVOUS SYSTEM [None]
  - NAUSEA [None]
